FAERS Safety Report 6370039-8 (Version None)
Quarter: 2009Q3

REPORT INFORMATION
  Report Type: 
  Country: None (occurrence: None)
  Receive Date: 20090923
  Receipt Date: 20070411
  Transmission Date: 20100115
  Serious: Yes (Hospitalization)
  Sender: FDA-Public Use
  Company Number: US-ASTRAZENECA-2006UW04688

PATIENT
  Age: 31 Year
  Sex: Female
  Weight: 90.7 kg

DRUGS (43)
  1. SEROQUEL [Suspect]
     Indication: BIPOLAR DISORDER
     Dosage: APPROXIMATELY 25 TO 50 MG
     Route: 048
     Dates: start: 20040401, end: 20050201
  2. SEROQUEL [Suspect]
     Indication: SCHIZOPHRENIA
     Dosage: APPROXIMATELY 25 TO 50 MG
     Route: 048
     Dates: start: 20040401, end: 20050201
  3. SEROQUEL [Suspect]
     Dosage: 25-800 MG
     Route: 048
     Dates: start: 20040412
  4. SEROQUEL [Suspect]
     Dosage: 25-800 MG
     Route: 048
     Dates: start: 20040412
  5. SEROQUEL [Suspect]
     Dosage: APPROXIMATELY 200 TO 800 MG
     Route: 048
     Dates: start: 20050201, end: 20050701
  6. SEROQUEL [Suspect]
     Dosage: APPROXIMATELY 200 TO 800 MG
     Route: 048
     Dates: start: 20050201, end: 20050701
  7. ABILIFY [Suspect]
     Route: 048
     Dates: start: 20040510
  8. ABILIFY [Suspect]
     Route: 048
     Dates: start: 20041101, end: 20050701
  9. ZYPREXA [Suspect]
     Route: 048
     Dates: start: 20040505
  10. ZYPREXA [Suspect]
     Dosage: APPROXIMATELY 5 TO 10 MG
     Dates: start: 20040701, end: 20050201
  11. RISPERDAL [Suspect]
     Route: 048
     Dates: start: 20040726
  12. GEODON [Suspect]
     Route: 048
     Dates: start: 20040329
  13. PROMETHAZINE [Concomitant]
  14. LORATADINE [Concomitant]
  15. KLONOPIN [Concomitant]
  16. LEXAPRO [Concomitant]
  17. WELLBUTRIN SR [Concomitant]
  18. TRICOR [Concomitant]
  19. LUNESTA [Concomitant]
  20. ACTOS [Concomitant]
  21. DEPAKOTE ER [Concomitant]
  22. PRILOSEC [Concomitant]
  23. LANTUS [Concomitant]
  24. EQUETRO [Concomitant]
  25. GLUCOPHAGE [Concomitant]
  26. TOPAMAX [Concomitant]
  27. VICODIN [Concomitant]
  28. DEXTROPROPOXYPHENE HYDROCHLORIDE [Concomitant]
  29. BENZTROPINE MESYLATE [Concomitant]
  30. GEMFIBROZIL [Concomitant]
  31. TRAZODONE HYDROCHLORIDE [Concomitant]
  32. AMARYL [Concomitant]
  33. TEMAZEPAM [Concomitant]
  34. RELPAX [Concomitant]
  35. PHENTERMINE HYDROCHLORIDE [Concomitant]
  36. FLUCONAZOLE [Concomitant]
  37. NEXIUM [Concomitant]
  38. NOVOLIN R [Concomitant]
  39. EFFEXOR XR [Concomitant]
  40. NAPROXEN SODIUM [Concomitant]
  41. LITHIUM CARBONATE [Concomitant]
  42. FERROUS SULFATE TAB [Concomitant]
  43. METHYLPREDNISOLONE 4MG TAB [Concomitant]

REACTIONS (6)
  - BLOOD CHOLESTEROL INCREASED [None]
  - DIABETES MELLITUS [None]
  - DIABETIC KETOACIDOSIS [None]
  - HYPERLIPIDAEMIA [None]
  - OBESITY [None]
  - SCHIZOPHRENIA [None]
